FAERS Safety Report 8034120-X (Version None)
Quarter: 2012Q1

REPORT INFORMATION
  Report Type: 
  Country: None (occurrence: None)
  Receive Date: 20120110
  Receipt Date: 20111230
  Transmission Date: 20120608
  Serious: Yes (Hospitalization, Other)
  Sender: FDA-Public Use
  Company Number: US-ACTELION-A-US2011-58183

PATIENT

DRUGS (23)
  1. PRADAXA [Concomitant]
     Dosage: UNK
     Dates: start: 20111117
  2. NASONEX [Concomitant]
  3. VITAMIN C [Concomitant]
  4. BUMEX [Concomitant]
  5. QUESTRAN [Concomitant]
  6. REVATIO [Concomitant]
  7. QUINIDINE HCL [Concomitant]
  8. PROTONIX [Concomitant]
  9. CELEXA [Concomitant]
  10. XOPENEX [Concomitant]
  11. TRACLEER [Suspect]
     Indication: PULMONARY ARTERIAL HYPERTENSION
     Dosage: 125 MG, BID
     Route: 048
     Dates: start: 20060501
  12. OXYGEN [Concomitant]
  13. METOLAZONE [Concomitant]
  14. DIGOXIN [Concomitant]
  15. MAGNESIUM OXIDE [Concomitant]
  16. KLOR-CON [Concomitant]
  17. TYVASO [Concomitant]
  18. COUMADIN [Concomitant]
     Dosage: UNK
     Dates: start: 19960201
  19. XANAX [Concomitant]
  20. TRACLEER [Suspect]
     Dosage: 62.5 MG, BID
     Route: 048
     Dates: start: 20060401, end: 20060501
  21. CALCIUM + VITAMIN D [Concomitant]
  22. MULTI-VITAMIN [Concomitant]
  23. VICODIN [Concomitant]

REACTIONS (22)
  - HYPOXIA [None]
  - MENTAL STATUS CHANGES [None]
  - SINOBRONCHITIS [None]
  - CARDIAC FAILURE CONGESTIVE [None]
  - DIARRHOEA [None]
  - RESPIRATORY TRACT INFECTION [None]
  - BRONCHITIS BACTERIAL [None]
  - WHITE BLOOD CELL COUNT DECREASED [None]
  - HYPERKALAEMIA [None]
  - BRONCHOSPASM [None]
  - CONDITION AGGRAVATED [None]
  - EISENMENGER'S SYNDROME [None]
  - ASTHMA [None]
  - NAUSEA [None]
  - PNEUMONIA [None]
  - WEIGHT INCREASED [None]
  - PYREXIA [None]
  - SPUTUM PURULENT [None]
  - WHEEZING [None]
  - ANAEMIA [None]
  - VOMITING [None]
  - DYSPNOEA [None]
